FAERS Safety Report 5209276-4 (Version None)
Quarter: 2007Q1

REPORT INFORMATION
  Report Type: 
  Country: None (occurrence: None)
  Receive Date: 20070111
  Receipt Date: 20061227
  Transmission Date: 20070707
  Serious: Yes (Death)
  Sender: FDA-Public Use
  Company Number: 2006S1011871

PATIENT
  Age: 19 Year
  Sex: Male

DRUGS (1)
  1. FENTANYL TRANSDERMAL SYSTEM [Suspect]
     Dosage: PO
     Route: 048
     Dates: end: 20050501

REACTIONS (3)
  - DRUG SCREEN POSITIVE [None]
  - INTENTIONAL DRUG MISUSE [None]
  - MULTI-ORGAN FAILURE [None]
